FAERS Safety Report 24456207 (Version 2)
Quarter: 2024Q4

REPORT INFORMATION
  Report Type: Spontaneous
  Country: US (occurrence: US)
  Receive Date: 20241017
  Receipt Date: 20241018
  Transmission Date: 20250114
  Serious: No
  Sender: ROCHE
  Company Number: US-ROCHE-3496183

PATIENT
  Age: 68 Year
  Sex: Male

DRUGS (9)
  1. RITUXIMAB [Suspect]
     Active Substance: RITUXIMAB
     Indication: Non-Hodgkin^s lymphoma
     Route: 065
  2. RITUXIMAB [Suspect]
     Active Substance: RITUXIMAB
     Dosage: ONE DOSE
     Route: 065
     Dates: start: 201711, end: 201711
  3. RITUXIMAB [Suspect]
     Active Substance: RITUXIMAB
     Dosage: ONE DOSE
     Route: 065
     Dates: start: 201804, end: 201804
  4. BRENTUXIMAB [Suspect]
     Active Substance: BRENTUXIMAB
     Indication: Non-Hodgkin^s lymphoma
     Route: 065
  5. PREDNISONE [Concomitant]
     Active Substance: PREDNISONE
     Dosage: UNKNOWN
  6. PREDNISONE [Concomitant]
     Active Substance: PREDNISONE
     Dosage: TAPERED TP 10 MG DAILY
  7. PREDNISONE [Concomitant]
     Active Substance: PREDNISONE
     Dates: start: 201807
  8. IMURAN [Concomitant]
     Active Substance: AZATHIOPRINE
     Dates: start: 201807
  9. METHYLPREDNISOLONE [Concomitant]
     Active Substance: METHYLPREDNISOLONE
     Dates: start: 201807

REACTIONS (1)
  - Cytopenia [Unknown]
